FAERS Safety Report 17918073 (Version 2)
Quarter: 2020Q3

REPORT INFORMATION
  Report Type: Spontaneous
  Country: US (occurrence: US)
  Receive Date: 20200619
  Receipt Date: 20200716
  Transmission Date: 20201103
  Serious: Yes (Other)
  Sender: FDA-Public Use
  Company Number: US-009507513-2006USA005770

PATIENT
  Sex: Male
  Weight: 77.1 kg

DRUGS (14)
  1. PROAIR HFA [Concomitant]
     Active Substance: ALBUTEROL SULFATE
     Dosage: INHALER
  2. DIFICID [Suspect]
     Active Substance: FIDAXOMICIN
     Dosage: 1 TABLET TWICE DAILY
     Route: 048
     Dates: start: 20200513
  3. RANOLAZINE HYDROCHLORIDE [Concomitant]
     Active Substance: RANOLAZINE HYDROCHLORIDE
  4. ATORVASTATIN [Concomitant]
     Active Substance: ATORVASTATIN
  5. ATIVAN [Concomitant]
     Active Substance: LORAZEPAM
  6. IRON (UNSPECIFIED) [Concomitant]
     Active Substance: IRON
  7. FAMOTIDINE. [Concomitant]
     Active Substance: FAMOTIDINE
  8. ASPIRIN. [Concomitant]
     Active Substance: ASPIRIN
  9. COLACE [Concomitant]
     Active Substance: DOCUSATE SODIUM
  10. PLAVIX [Concomitant]
     Active Substance: CLOPIDOGREL BISULFATE
  11. NITROGLYCERIN. [Concomitant]
     Active Substance: NITROGLYCERIN
     Dosage: PROBABLY AS NEEDED
  12. IMDUR [Concomitant]
     Active Substance: ISOSORBIDE MONONITRATE
  13. DIFICID [Suspect]
     Active Substance: FIDAXOMICIN
     Indication: CLOSTRIDIUM DIFFICILE INFECTION
     Dosage: 1 TABLET TWICE DAILY
     Route: 048
     Dates: start: 20200504
  14. METOPROLOL. [Concomitant]
     Active Substance: METOPROLOL

REACTIONS (8)
  - Diarrhoea [Unknown]
  - Dizziness [Unknown]
  - Clostridium difficile infection [Unknown]
  - Tinnitus [Unknown]
  - Tension [Unknown]
  - Pruritus [Unknown]
  - Sleep disorder [Unknown]
  - Asthenia [Unknown]

NARRATIVE: CASE EVENT DATE: 20200513
